FAERS Safety Report 10425692 (Version 3)
Quarter: 2014Q3

REPORT INFORMATION
  Report Type: Spontaneous
  Country: DE (occurrence: DE)
  Receive Date: 20140903
  Receipt Date: 20140925
  Transmission Date: 20150326
  Serious: Yes (Hospitalization, Other)
  Sender: FDA-Public Use
  Company Number: DE-AUROBINDO-AUR-APL-2014-07825

PATIENT
  Age: 33 Year
  Sex: Female
  Weight: 112 kg

DRUGS (3)
  1. LOSARTAN [Suspect]
     Active Substance: LOSARTAN
     Indication: HYPERTENSION
     Route: 048
  2. PRESINOL [Suspect]
     Active Substance: METHYLDOPA
     Indication: HYPERTENSION
     Dosage: 500 MG, 3 TIMES A DAY
     Route: 048
  3. METOPROLOL 100MG [Suspect]
     Active Substance: METOPROLOL
     Indication: HYPERTENSION
     Dosage: 100 MG, TWO TIMES A DAY
     Route: 048
     Dates: start: 20130217, end: 20131015

REACTIONS (4)
  - Exposure during pregnancy [Unknown]
  - Blood pressure inadequately controlled [Unknown]
  - Oligohydramnios [Unknown]
  - Proteinuria [Unknown]
